FAERS Safety Report 6187777-2 (Version None)
Quarter: 2009Q2

REPORT INFORMATION
  Report Type: 
  Country: None (occurrence: None)
  Receive Date: 20090511
  Receipt Date: 20090511
  Transmission Date: 20091009
  Serious: Yes (Other)
  Sender: FDA-Public Use
  Company Number: None

PATIENT
  Sex: Female
  Weight: 79.3795 kg

DRUGS (2)
  1. CYMBALTA [Suspect]
     Indication: FIBROMYALGIA
     Dosage: 300MG DAILY P.O.
     Route: 048
     Dates: start: 20090312
  2. CYMBALTA [Suspect]
     Indication: FIBROMYALGIA
     Dosage: 600MG DAILY PO
     Route: 048
     Dates: start: 20090326

REACTIONS (4)
  - FLUSHING [None]
  - VAGINAL DISCHARGE [None]
  - VAGINAL ODOUR [None]
  - VULVOVAGINAL DISCOMFORT [None]
